FAERS Safety Report 13588760 (Version 1)
Quarter: 2017Q2

REPORT INFORMATION
  Report Type: Spontaneous
  Country: US (occurrence: US)
  Receive Date: 20170529
  Receipt Date: 20170529
  Transmission Date: 20170830
  Serious: No
  Sender: FDA-Public Use
  Company Number: US-B.I. PHARMACEUTICALS,INC./RIDGEFIELD-2017-BI-028824

PATIENT
  Sex: Female

DRUGS (1)
  1. ZANTAC MAXIMUM STRENGTH 150 COOL MINT [Suspect]
     Active Substance: RANITIDINE HYDROCHLORIDE
     Indication: PRODUCT USED FOR UNKNOWN INDICATION
     Dosage: FORM STRENGTH: 150 MG; FORMULATION: TABLET? ADMINISTRATION CORRECT? NR(NOT REPORTED) ?ACTION(S) TAKE
     Route: 048

REACTIONS (2)
  - Drug ineffective [Unknown]
  - Choking [Recovered/Resolved]

NARRATIVE: CASE EVENT DATE: 2017
